FAERS Safety Report 17597104 (Version 1)
Quarter: 2020Q1

REPORT INFORMATION
  Report Type: Spontaneous
  Country: FR (occurrence: FR)
  Receive Date: 20200330
  Receipt Date: 20200330
  Transmission Date: 20200409
  Serious: Yes (Hospitalization)
  Sender: FDA-Public Use
  Company Number: FR-TEVA-2020-FR-1212382

PATIENT
  Age: 68 Year
  Sex: Female
  Weight: 77 kg

DRUGS (3)
  1. CIPROFLOXACINE [Suspect]
     Active Substance: CIPROFLOXACIN
     Indication: OSTEITIS
     Dosage: 1500 MILLIGRAM
     Route: 048
     Dates: start: 20191216, end: 20200120
  2. CEFEPIME [Suspect]
     Active Substance: CEFEPIME HYDROCHLORIDE
     Indication: OSTEITIS
     Dosage: 6 GRAM
     Route: 042
     Dates: start: 20191216, end: 20200120
  3. CEFUROXIME. [Suspect]
     Active Substance: CEFUROXIME
     Indication: OSTEITIS
     Dosage: 2250 MILLIGRAM
     Route: 065
     Dates: start: 20200120, end: 20200124

REACTIONS (3)
  - Nephritis allergic [Recovering/Resolving]
  - Tubulointerstitial nephritis [Recovering/Resolving]
  - Acute kidney injury [Recovering/Resolving]

NARRATIVE: CASE EVENT DATE: 20200117
